FAERS Safety Report 10025187 (Version 1)
Quarter: 2014Q1

REPORT INFORMATION
  Report Type: Spontaneous
  Country: US (occurrence: None)
  Receive Date: 20140214
  Receipt Date: 20140214
  Transmission Date: 20141002
  Serious: Yes (Other)
  Sender: FDA-Public Use
  Company Number: 2014-US-001199

PATIENT
  Age: 51 Year
  Sex: Male
  Weight: 83.9 kg

DRUGS (9)
  1. XYREM [Suspect]
     Indication: NARCOLEPSY
     Dates: start: 20140117
  2. XYREM [Suspect]
     Indication: SOMNOLENCE
     Dates: start: 20140117
  3. PROVIGIL (MODAFINIL) [Concomitant]
  4. RITALIN [Concomitant]
  5. CYTOMEL (LIOTHYRONINE SODIUM) [Concomitant]
  6. ARMOUR THYROID (THYROID) [Concomitant]
  7. ADVAIR (FLUTICASONE PROPIONATE, SALMETEROL XINAFOATE) [Concomitant]
  8. FLONASE (FLUTICASONE PROPIONATE) [Concomitant]
  9. WELLBUTRIN (BUPROPION HYDROCHLORIDE) [Concomitant]

REACTIONS (4)
  - Sleep apnoea syndrome [None]
  - Snoring [None]
  - Chest discomfort [None]
  - Weight decreased [None]
